FAERS Safety Report 15700690 (Version 4)
Quarter: 2020Q4

REPORT INFORMATION
  Report Type: Report from Study
  Country: US (occurrence: US)
  Receive Date: 20181207
  Receipt Date: 20201120
  Transmission Date: 20210113
  Serious: Yes (Disabling, Other)
  Sender: FDA-Public Use
  Company Number: US-SA-2018SA331190

PATIENT

DRUGS (1)
  1. TERIFLUNOMIDE. [Suspect]
     Active Substance: TERIFLUNOMIDE
     Indication: MULTIPLE SCLEROSIS
     Dosage: 14 MG, QD
     Route: 048
     Dates: start: 20180620

REACTIONS (8)
  - Condition aggravated [Unknown]
  - Stress [Unknown]
  - Blood glucose decreased [Unknown]
  - Band sensation [Unknown]
  - Memory impairment [Not Recovered/Not Resolved]
  - Disability [Not Recovered/Not Resolved]
  - Tremor [Unknown]
  - Alopecia [Unknown]

NARRATIVE: CASE EVENT DATE: 202011
